FAERS Safety Report 23924447 (Version 3)
Quarter: 2024Q3

REPORT INFORMATION
  Report Type: Spontaneous
  Country: US (occurrence: US)
  Receive Date: 20240531
  Receipt Date: 20240815
  Transmission Date: 20241016
  Serious: Yes (Other)
  Sender: PFIZER
  Company Number: US-PFIZER INC-PV202400071057

PATIENT
  Age: 75 Year
  Sex: Female

DRUGS (2)
  1. IBRANCE [Suspect]
     Active Substance: PALBOCICLIB
     Dosage: ONCE DAILY TAKE FOR 21 DAYS FOLLOWED BY 7 DAYS OFF OF A 28 DAY CYCLE
     Route: 048
  2. IBRANCE [Suspect]
     Active Substance: PALBOCICLIB
     Dosage: 21 DAYS ON, 7 DAYS OFF
     Dates: start: 20240805

REACTIONS (3)
  - Second primary malignancy [Unknown]
  - Bone cancer [Unknown]
  - White blood cell count decreased [Unknown]
